FAERS Safety Report 7978591-3 (Version None)
Quarter: 2011Q4

REPORT INFORMATION
  Report Type: 
  Country: None (occurrence: None)
  Receive Date: 20111205
  Receipt Date: 20111124
  Transmission Date: 20120403
  Serious: Yes (Other)
  Sender: FDA-Public Use
  Company Number: 7097960

PATIENT
  Age: 34 Year
  Sex: Female

DRUGS (2)
  1. LEVOTHYROXINE SODIUM [Suspect]
     Indication: WEIGHT CONTROL
     Dosage: ORAL
     Route: 048
     Dates: start: 20111001, end: 20111024
  2. METFORMIN HCL [Concomitant]

REACTIONS (3)
  - OFF LABEL USE [None]
  - LACTIC ACIDOSIS [None]
  - THYROID DISORDER [None]
